FAERS Safety Report 21375473 (Version 1)
Quarter: 2022Q3

REPORT INFORMATION
  Report Type: Spontaneous
  Country: ES (occurrence: ES)
  Receive Date: 20220926
  Receipt Date: 20220926
  Transmission Date: 20221027
  Serious: Yes (Hospitalization, Other)
  Sender: FDA-Public Use
  Company Number: None

PATIENT

DRUGS (14)
  1. DICLOFENAC [Suspect]
     Active Substance: DICLOFENAC
     Indication: Osteoarthritis
     Dosage: UNK
     Dates: start: 2021
  2. AMIODARONE HYDROCHLORIDE [Concomitant]
     Active Substance: AMIODARONE HYDROCHLORIDE
     Indication: Atrial fibrillation
     Dosage: UNK, MG IRREGULAR
     Route: 048
     Dates: start: 20161005
  3. FENTANYL [Concomitant]
     Active Substance: FENTANYL
     Indication: Osteoarthritis
     Dosage: 1 DF (1.0 PATCH EVERY 72 HOURS)
     Dates: start: 20181103
  4. ACETAMINOPHEN [Concomitant]
     Active Substance: ACETAMINOPHEN
     Indication: Arthropathy
     Dosage: 1 G, TID (1.0 G C/8 HOURS)
     Route: 048
     Dates: start: 20190307
  5. FLUTICASONE FUROATE\VILANTEROL TRIFENATATE [Concomitant]
     Active Substance: FLUTICASONE FUROATE\VILANTEROL TRIFENATATE
     Indication: Arthropathy
     Dosage: 1 PUFF(S), QD (1.0 PUFF EVERY 24H)
     Dates: start: 20210729
  6. ATORVASTATIN [Concomitant]
     Active Substance: ATORVASTATIN
     Indication: Hypercholesterolaemia
     Dosage: 40 MG (40.0 MG CE)
     Route: 048
     Dates: start: 20210322
  7. GELOTRADOL [Concomitant]
     Indication: Arthropathy
     Dosage: 50 MG, BID (50.0 MG C/12 H)
     Route: 048
     Dates: start: 20210615
  8. PAROXETINE [Concomitant]
     Active Substance: PAROXETINE
     Indication: Depression
     Dosage: 20 MG (20.0 MG DE)
     Route: 048
     Dates: start: 20150724
  9. CALCIUM DOBESILATE [Concomitant]
     Active Substance: CALCIUM DOBESILATE
     Indication: Peripheral venous disease
     Dosage: 500 MG (500.0 MG DECE)
     Route: 048
     Dates: start: 20190926
  10. SINTROM [Concomitant]
     Active Substance: ACENOCOUMAROL
     Indication: Atrial fibrillation
     Dosage: 4 MG (4.0 MG CE)
     Route: 048
     Dates: start: 20190121
  11. EUTHYROX [Concomitant]
     Active Substance: LEVOTHYROXINE SODIUM
     Indication: Hypothyroidism
     Dosage: 75 ?G (75.0 MCG A-DE)
     Route: 048
     Dates: start: 20181103
  12. COSOPT [Concomitant]
     Active Substance: DORZOLAMIDE HYDROCHLORIDE\TIMOLOL MALEATE
     Indication: Glaucoma
     Dosage: UNK, 1.0 GTS C/12H
     Route: 050
     Dates: start: 20181204
  13. LANSOPRAZOLE [Concomitant]
     Active Substance: LANSOPRAZOLE
     Indication: Arthropathy
     Dosage: 30 MG (30.0 MG A-DE)
     Route: 048
     Dates: start: 20181003
  14. TRYPTIZOL [Concomitant]
     Active Substance: AMITRIPTYLINE HYDROCHLORIDE
     Indication: Migraine
     Dosage: 20 MG (20.0 MG CE)
     Route: 048
     Dates: start: 20200212

REACTIONS (1)
  - Gastrointestinal haemorrhage [Recovered/Resolved]

NARRATIVE: CASE EVENT DATE: 20210912
